FAERS Safety Report 11099116 (Version 1)
Quarter: 2015Q2

REPORT INFORMATION
  Report Type: Spontaneous
  Country: US (occurrence: None)
  Receive Date: 20150506
  Receipt Date: 20150506
  Transmission Date: 20150821
  Serious: Yes (Hospitalization)
  Sender: FDA-Public Use
  Company Number: CPS-2015-0015

PATIENT
  Sex: Male

DRUGS (1)
  1. OXYCODONE HYDROCHLORIDE TABLETS (OXYCODONE HYDROCHLORIDE) TABLET [Suspect]
     Active Substance: OXYCODONE HYDROCHLORIDE
     Indication: PAIN
     Dosage: 650 MG, UNK, ORAL
     Route: 048
     Dates: end: 2014

REACTIONS (3)
  - Euphoric mood [None]
  - Withdrawal syndrome [None]
  - Tremor [None]

NARRATIVE: CASE EVENT DATE: 2014
